FAERS Safety Report 20784155 (Version 9)
Quarter: 2023Q4

REPORT INFORMATION
  Report Type: Report from Study
  Country: CN (occurrence: None)
  Receive Date: 20220504
  Receipt Date: 20231013
  Transmission Date: 20240110
  Serious: Yes (Hospitalization)
  Sender: FDA-Public Use
  Company Number: CN-ROCHE-2969128

PATIENT
  Age: 64 Year
  Sex: Male
  Weight: 73.2 kg

DRUGS (34)
  1. TIRAGOLUMAB [Suspect]
     Active Substance: TIRAGOLUMAB
     Indication: Non-small cell lung cancer metastatic
     Dosage: DOSE LAST STUDY DRUG ADMIN PRIOR AE/SAE IS 600 MG?ON 04/NOV/2021, MOST RECENT DOSE OF TIRAGOLUMAB PR
     Route: 042
     Dates: start: 20210610
  2. ATEZOLIZUMAB [Suspect]
     Active Substance: ATEZOLIZUMAB
     Indication: Non-small cell lung cancer metastatic
     Dosage: DOSE LAST STUDY DRUG ADMIN PRIOR SAE IS 1200 MG.?ON 04/NOV/2021, MOST RECENT DOSE OF ATEZOLIZUMAB PR
     Route: 042
     Dates: start: 20210610
  3. VALSARTAN [Concomitant]
     Active Substance: VALSARTAN
     Indication: Hypertension
     Route: 048
     Dates: start: 202105
  4. ATORVASTATIN CALCIUM [Concomitant]
     Active Substance: ATORVASTATIN CALCIUM
     Indication: Coronary artery disease
     Route: 048
     Dates: start: 201809
  5. METOPROLOL TARTRATE [Concomitant]
     Active Substance: METOPROLOL TARTRATE
     Indication: Coronary artery disease
     Route: 048
     Dates: start: 201809
  6. DIPHENHYDRAMINE HYDROCHLORIDE [Concomitant]
     Active Substance: DIPHENHYDRAMINE HYDROCHLORIDE
     Indication: Infusion related reaction
     Route: 030
     Dates: start: 20210701, end: 20211104
  7. GANCICLOVIR [Concomitant]
     Active Substance: GANCICLOVIR
     Route: 048
     Dates: start: 20211215
  8. GANCICLOVIR [Concomitant]
     Active Substance: GANCICLOVIR
     Route: 048
     Dates: start: 20220113, end: 20220130
  9. ESSENTIALE [Concomitant]
     Indication: Alanine aminotransferase increased
     Dosage: 2 TABLET
     Route: 048
     Dates: start: 20211230
  10. ESSENTIALE [Concomitant]
     Indication: Aspartate aminotransferase increased
  11. COMPOUND PARACETAMOL [Concomitant]
     Indication: Pneumonia
     Dosage: LIQUID
     Route: 042
     Dates: start: 20220103, end: 20220103
  12. COMPOUND PARACETAMOL [Concomitant]
     Route: 048
     Dates: start: 20220101, end: 20220102
  13. MOXIFLOXACIN HYDROCHLORIDE [Concomitant]
     Active Substance: MOXIFLOXACIN HYDROCHLORIDE\MOXIFLOXACIN HYDROCHLORIDE MONOHYDRATE
     Indication: Pneumonia
     Route: 042
     Dates: start: 20220106, end: 20220106
  14. AMBROXOL HYDROCHLORIDE [Concomitant]
     Active Substance: AMBROXOL HYDROCHLORIDE
     Indication: Productive cough
     Route: 042
     Dates: start: 20220112, end: 20220129
  15. AMBROXOL HYDROCHLORIDE [Concomitant]
     Active Substance: AMBROXOL HYDROCHLORIDE
     Route: 042
     Dates: start: 20220112, end: 20220118
  16. METHYLPREDNISOLONE SODIUM SUCCINATE [Concomitant]
     Active Substance: METHYLPREDNISOLONE SODIUM SUCCINATE
     Route: 042
     Dates: start: 20220112, end: 20220117
  17. METHYLPREDNISOLONE SODIUM SUCCINATE [Concomitant]
     Active Substance: METHYLPREDNISOLONE SODIUM SUCCINATE
     Route: 042
     Dates: start: 20220112, end: 20220118
  18. METHYLPREDNISOLONE SODIUM SUCCINATE [Concomitant]
     Active Substance: METHYLPREDNISOLONE SODIUM SUCCINATE
     Route: 042
     Dates: start: 20220123, end: 20220127
  19. OMEPRAZOLE SODIUM [Concomitant]
     Active Substance: OMEPRAZOLE SODIUM
     Route: 042
     Dates: start: 20220112, end: 20220129
  20. OMEPRAZOLE SODIUM [Concomitant]
     Active Substance: OMEPRAZOLE SODIUM
     Route: 042
     Dates: start: 20220112, end: 20220118
  21. CARBAZOCHROME SODIUM SULFONATE [Concomitant]
     Active Substance: CARBAZOCHROME SODIUM SULFONATE
     Indication: Haemoptysis
     Route: 042
     Dates: start: 20220112, end: 20220118
  22. FAMOTIDINE [Concomitant]
     Active Substance: FAMOTIDINE
     Indication: Colitis ulcerative
     Route: 048
     Dates: start: 20220113, end: 20220130
  23. FAMOTIDINE [Concomitant]
     Active Substance: FAMOTIDINE
     Route: 048
     Dates: start: 20220119, end: 20220122
  24. COMPOUND GLUTAMINE GRANULES [Concomitant]
     Route: 048
     Dates: start: 20220113, end: 20220130
  25. FLUCONAZOLE [Concomitant]
     Active Substance: FLUCONAZOLE
     Route: 042
     Dates: start: 20220114, end: 20220128
  26. ALBUMIN HUMAN [Concomitant]
     Active Substance: ALBUMIN HUMAN
     Route: 042
     Dates: start: 20220115, end: 20220117
  27. FUROSEMIDE [Concomitant]
     Active Substance: FUROSEMIDE
     Indication: Polyuria
     Route: 042
     Dates: start: 20220115, end: 20220117
  28. ADALAT [Concomitant]
     Active Substance: NIFEDIPINE
     Indication: Polyuria
     Route: 048
     Dates: start: 20220117, end: 20220130
  29. ADALAT [Concomitant]
     Active Substance: NIFEDIPINE
     Indication: Blood pressure measurement
  30. SOLU-MEDROL [Concomitant]
     Active Substance: METHYLPREDNISOLONE SODIUM SUCCINATE
     Dosage: ONGOING NO
     Route: 042
     Dates: start: 20220118, end: 20220122
  31. ASPIRIN [Concomitant]
     Active Substance: ASPIRIN
     Indication: Coronary artery disease
     Route: 048
     Dates: start: 201809, end: 202201
  32. PHOSPHOLIPID [Concomitant]
     Active Substance: PHOSPHOLIPID
     Route: 048
     Dates: start: 20211230, end: 202201
  33. DIAO XIN XUE KANG [Concomitant]
     Indication: Coronary artery disease
     Dosage: 2 CAPSULE
     Route: 048
     Dates: start: 201809
  34. PIPERACILLIN AND TAZOBACTAM [Concomitant]
     Active Substance: PIPERACILLIN SODIUM\TAZOBACTAM SODIUM
     Route: 042
     Dates: start: 20220112, end: 20220118

REACTIONS (1)
  - Colitis ulcerative [Not Recovered/Not Resolved]

NARRATIVE: CASE EVENT DATE: 20211119
